FAERS Safety Report 4876386-0 (Version None)
Quarter: 2005Q4

REPORT INFORMATION
  Report Type: 
  Country: None (occurrence: None)
  Receive Date: 20051206
  Receipt Date: 20051014
  Transmission Date: 20060501
  Serious: No
  Sender: FDA-Public Use
  Company Number: USA0510110978

PATIENT
  Age: 36 Year
  Sex: Male

DRUGS (5)
  1. CYMBALTA [Suspect]
     Indication: DEPRESSION
     Dosage: 30 MG
     Dates: start: 20050901, end: 20050901
  2. ALTACE [Concomitant]
  3. DARVOCET-N 100 [Concomitant]
  4. ATENOLOL W/ HYDROCHLOROTHIAZIDE [Concomitant]
  5. AUGMENTIN '125' [Concomitant]

REACTIONS (3)
  - FEELING HOT [None]
  - HYPOAESTHESIA [None]
  - PARAESTHESIA [None]
